FAERS Safety Report 5973169-5 (Version None)
Quarter: 2008Q4

REPORT INFORMATION
  Report Type: 
  Country: None (occurrence: None)
  Receive Date: 20081201
  Receipt Date: 20081126
  Transmission Date: 20090506
  Serious: Yes (Other)
  Sender: FDA-Public Use
  Company Number: PHEH2008US07370

PATIENT
  Sex: Female
  Weight: 56.236 kg

DRUGS (1)
  1. ENABLEX [Suspect]
     Indication: HYPERTONIC BLADDER
     Dosage: 7.5 MG, QD
     Route: 048
     Dates: start: 20070710, end: 20080421

REACTIONS (3)
  - AMNESIA [None]
  - ANXIETY [None]
  - APHASIA [None]
